FAERS Safety Report 4990066-2 (Version None)
Quarter: 2006Q2

REPORT INFORMATION
  Report Type: 
  Country: None (occurrence: None)
  Receive Date: 20060427
  Receipt Date: 20060419
  Transmission Date: 20061013
  Serious: Yes (Hospitalization, Other)
  Sender: FDA-Public Use
  Company Number: 2006041828

PATIENT
  Age: 51 Year
  Sex: Female
  Weight: 95 kg

DRUGS (5)
  1. NEURONTIN [Suspect]
     Indication: EPILEPSY
     Dosage: 900 MG (1 D), ORAL
     Route: 048
     Dates: start: 20060316, end: 20060327
  2. PRIMIDONE [Suspect]
     Indication: ILL-DEFINED DISORDER
  3. FRISIUM (CLOBAZAM) [Concomitant]
  4. ENALAPRIL MALEATE [Concomitant]
  5. TORSEMIDE [Concomitant]

REACTIONS (3)
  - ALANINE AMINOTRANSFERASE INCREASED [None]
  - ASPARTATE AMINOTRANSFERASE INCREASED [None]
  - EPILEPSY [None]
